FAERS Safety Report 5432283-3 (Version None)
Quarter: 2007Q3

REPORT INFORMATION
  Report Type: 
  Country: None (occurrence: None)
  Receive Date: 20070830
  Receipt Date: 20070827
  Transmission Date: 20080115
  Serious: Yes (Hospitalization)
  Sender: FDA-Public Use
  Company Number: CH-PFIZER INC-2007071410

PATIENT
  Sex: Male
  Weight: 60 kg

DRUGS (2)
  1. SOLU-MEDROL [Suspect]
     Indication: PROPHYLAXIS
     Route: 042
     Dates: start: 20070718, end: 20070718
  2. NAVOBAN [Suspect]
     Indication: PROPHYLAXIS
     Route: 042
     Dates: start: 20070718, end: 20070718

REACTIONS (1)
  - TYPE I HYPERSENSITIVITY [None]
